FAERS Safety Report 4852899-2 (Version None)
Quarter: 2005Q4

REPORT INFORMATION
  Report Type: 
  Country: None (occurrence: None)
  Receive Date: 20051212
  Receipt Date: 20051129
  Transmission Date: 20060501
  Serious: Yes (Other)
  Sender: FDA-Public Use
  Company Number: USA050290882

PATIENT
  Age: 33 Year
  Sex: Female

DRUGS (2)
  1. CYMBALTA [Suspect]
     Indication: DEPRESSION
     Dosage: 90 MG, DAILY (1/D), ORAL
     Route: 048
     Dates: start: 20041021
  2. LUVOX [Concomitant]

REACTIONS (2)
  - GRAND MAL CONVULSION [None]
  - PRESCRIBED OVERDOSE [None]
